FAERS Safety Report 5735283-9 (Version None)
Quarter: 2008Q2

REPORT INFORMATION
  Report Type: 
  Country: None (occurrence: None)
  Receive Date: 20080512
  Receipt Date: 20080507
  Transmission Date: 20081010
  Serious: Yes (Death)
  Sender: FDA-Public Use
  Company Number: SV-ABBOTT-08P-050-0451112-00

PATIENT
  Age: 22 Year
  Sex: Female

DRUGS (3)
  1. HUMIRA [Suspect]
     Indication: CROHN'S DISEASE
     Route: 058
     Dates: start: 20080409, end: 20080430
  2. METHOTREXATE [Concomitant]
     Indication: CROHN'S DISEASE
     Route: 048
     Dates: start: 20080409
  3. PREDNISONE TAB [Concomitant]
     Indication: FACE OEDEMA
     Route: 048

REACTIONS (1)
  - CARDIAC ARREST [None]
